FAERS Safety Report 18711680 (Version 2)
Quarter: 2021Q1

REPORT INFORMATION
  Report Type: Spontaneous
  Country: FR (occurrence: FR)
  Receive Date: 20210107
  Receipt Date: 20210121
  Transmission Date: 20210419
  Serious: Yes (Hospitalization)
  Sender: FDA-Public Use
  Company Number: FR-TEVA-2021-FR-1866081

PATIENT
  Age: 81 Year
  Sex: Male
  Weight: 91.4 kg

DRUGS (8)
  1. PRAVASTATINE SODIQUE [Suspect]
     Active Substance: PRAVASTATIN SODIUM
     Route: 065
  2. MICARDISPLUS [Concomitant]
     Active Substance: HYDROCHLOROTHIAZIDE\TELMISARTAN
  3. UVEDOSE [Concomitant]
     Active Substance: CHOLECALCIFEROL
  4. BISOPROLOL (FUMARATE ACIDE DE) [Concomitant]
     Active Substance: BISOPROLOL FUMARATE
  5. RESITUNE 75 MG, COMPRIME GASTRO?RESISTANT [Concomitant]
     Active Substance: ASPIRIN
  6. MOPRAL 10 MG, COMPRIME GASTRO?RESISTANT [Concomitant]
  7. TERALITHE [Suspect]
     Active Substance: LITHIUM CARBONATE
     Indication: BIPOLAR DISORDER
     Dosage: UNIT DOSE: 400 MG
     Route: 048
     Dates: start: 1992, end: 20201219
  8. COMBODART 0,5 MG/0,4 MG, GELULE [Concomitant]

REACTIONS (7)
  - Extrapyramidal disorder [Recovered/Resolved]
  - Gait disturbance [Recovered/Resolved]
  - Antipsychotic drug level increased [Recovering/Resolving]
  - Speech disorder [Recovered/Resolved]
  - Decreased appetite [Recovered/Resolved]
  - General physical health deterioration [Recovered/Resolved]
  - Bradycardia [Recovered/Resolved]

NARRATIVE: CASE EVENT DATE: 20201219
